FAERS Safety Report 12643021 (Version 2)
Quarter: 2016Q3

REPORT INFORMATION
  Report Type: Spontaneous
  Country: US (occurrence: US)
  Receive Date: 20160811
  Receipt Date: 20160816
  Transmission Date: 20161109
  Serious: No
  Sender: FDA-Public Use
  Company Number: US-HORIZON-RAV-0153-2016

PATIENT
  Age: 14 Year
  Sex: Male

DRUGS (5)
  1. ANAMIX JR. [Concomitant]
  2. RAVICTI [Suspect]
     Active Substance: GLYCEROL PHENYLBUTYRATE
     Indication: ARGININOSUCCINATE SYNTHETASE DEFICIENCY
     Dosage: 5.5 ML TID
     Dates: start: 20150528
  3. ARGININE [Concomitant]
     Active Substance: ARGININE
  4. PROTEIN [Concomitant]
     Active Substance: PROTEIN
     Dosage: 30 G
  5. PEDIASURE [Concomitant]
     Active Substance: VITAMINS

REACTIONS (2)
  - Malaise [Recovered/Resolved]
  - Influenza [Recovered/Resolved]

NARRATIVE: CASE EVENT DATE: 201607
